FAERS Safety Report 10487072 (Version 1)
Quarter: 2014Q4

REPORT INFORMATION
  Report Type: Spontaneous
  Country: GB (occurrence: GB)
  Receive Date: 20141001
  Receipt Date: 20141001
  Transmission Date: 20150528
  Serious: Yes (Other)
  Sender: FDA-Public Use
  Company Number: GB-ACTAVIS-2014-20842

PATIENT
  Age: 67 Year
  Sex: Female

DRUGS (2)
  1. GABAPENTIN (UNKNOWN) [Suspect]
     Active Substance: GABAPENTIN
     Indication: PRODUCT USED FOR UNKNOWN INDICATION
     Dosage: UNK
     Route: 065
  2. INSULIN [Concomitant]
     Active Substance: INSULIN NOS
     Indication: PRODUCT USED FOR UNKNOWN INDICATION
     Dosage: UNK
     Route: 065

REACTIONS (17)
  - Pain in extremity [Unknown]
  - Loss of consciousness [Unknown]
  - Muscle twitching [Unknown]
  - Memory impairment [Unknown]
  - Arrhythmia [Unknown]
  - Depressed level of consciousness [Unknown]
  - Pruritus [Unknown]
  - Joint stiffness [Unknown]
  - Homicidal ideation [Unknown]
  - Musculoskeletal stiffness [Unknown]
  - Paraesthesia [Unknown]
  - Neck pain [Unknown]
  - Renal cyst [Unknown]
  - Erythema [Unknown]
  - Skin exfoliation [Unknown]
  - Muscle spasms [Unknown]
  - Musculoskeletal pain [Unknown]
